FAERS Safety Report 10936313 (Version 1)
Quarter: 2015Q1

REPORT INFORMATION
  Report Type: Spontaneous
  Country: US (occurrence: None)
  Receive Date: 20150320
  Receipt Date: 20150320
  Transmission Date: 20150721
  Serious: Yes (Disabling)
  Sender: FDA-Public Use
  Company Number: None

PATIENT
  Age: 50 Year
  Sex: Male
  Weight: 79.38 kg

DRUGS (5)
  1. TAMSULOSIN (FLOWMAX) [Concomitant]
  2. MONTELUKAST (SINGULAIR) [Concomitant]
  3. ASPIRIN. [Concomitant]
     Active Substance: ASPIRIN
  4. PRAVASTATIN [Suspect]
     Active Substance: PRAVASTATIN\PRAVASTATIN SODIUM
     Dosage: 1, ONCE DAILY, TAKEN BY MOUTH
     Route: 048
  5. LEVOCETIRIZINE (XYZAL) [Concomitant]

REACTIONS (1)
  - Tendon injury [None]

NARRATIVE: CASE EVENT DATE: 20150302
